FAERS Safety Report 9112963 (Version 1)
Quarter: 2013Q1

REPORT INFORMATION
  Report Type: Spontaneous
  Country: IT (occurrence: IT)
  Receive Date: 20130211
  Receipt Date: 20130211
  Transmission Date: 20140127
  Serious: Yes (Hospitalization)
  Sender: FDA-Public Use
  Company Number: IT-PFIZER INC-2013026070

PATIENT
  Age: 22 Year
  Sex: Female

DRUGS (3)
  1. ZOLOFT [Suspect]
     Dosage: 15 DF, TOTAL DOSE
     Route: 048
     Dates: start: 20130116, end: 20130116
  2. DOXAZOSIN MESILATE [Suspect]
     Dosage: 60 MG, TOTAL DOSE
     Route: 048
     Dates: start: 20130116, end: 20130116
  3. LEXOTAN [Suspect]
     Dosage: 10 ML, TOTAL DOSE
     Route: 048
     Dates: start: 20130116, end: 20130116

REACTIONS (5)
  - Hypotension [Recovering/Resolving]
  - Tachycardia [Recovering/Resolving]
  - Tetany [Recovering/Resolving]
  - Tremor [Recovering/Resolving]
  - Sopor [Recovering/Resolving]
